FAERS Safety Report 13508899 (Version 3)
Quarter: 2017Q4

REPORT INFORMATION
  Report Type: Spontaneous
  Country: US (occurrence: US)
  Receive Date: 20170503
  Receipt Date: 20171222
  Transmission Date: 20180320
  Serious: Yes (Hospitalization, Other)
  Sender: FDA-Public Use
  Company Number: US-PFIZER INC-2017189009

PATIENT
  Age: 29 Year
  Sex: Male

DRUGS (1)
  1. SULFAMETHOXAZOLE/TRIMETHOPRIM [Suspect]
     Active Substance: SULFAMETHOXAZOLE\TRIMETHOPRIM
     Indication: WOUND INFECTION
     Dosage: UNK

REACTIONS (8)
  - Toxicity to various agents [None]
  - Weight decreased [None]
  - Nausea [None]
  - Hepatic steatosis [None]
  - Drug resistance [None]
  - Chromaturia [None]
  - Cholestasis [Recovering/Resolving]
  - Abdominal pain upper [None]
